FAERS Safety Report 8870546 (Version 1)
Quarter: 2012Q4

REPORT INFORMATION
  Report Type: Spontaneous
  Country: US (occurrence: None)
  Receive Date: 20121026
  Receipt Date: 20121026
  Transmission Date: 20130627
  Serious: Yes (Other)
  Sender: FDA-Public Use
  Company Number: None

PATIENT
  Age: 65 Year
  Sex: Female
  Weight: 87.54 kg

DRUGS (4)
  1. RESTASIS [Suspect]
     Indication: DRY EYES
  2. RESTASIS [Suspect]
     Indication: RED EYE
  3. RESTASIS [Suspect]
     Indication: EYE IRRITATION
  4. RESTASIS [Suspect]
     Indication: WATERING EYES

REACTIONS (1)
  - Cataract [None]
